FAERS Safety Report 7958746-4 (Version None)
Quarter: 2011Q4

REPORT INFORMATION
  Report Type: 
  Country: None (occurrence: None)
  Receive Date: 20111206
  Receipt Date: 20111125
  Transmission Date: 20120403
  Serious: Yes (Other)
  Sender: FDA-Public Use
  Company Number: DE-JNJFOC-20111111975

PATIENT

DRUGS (1)
  1. XARELTO [Suspect]
     Indication: KNEE OPERATION
     Route: 065

REACTIONS (1)
  - THROMBOSIS [None]
